FAERS Safety Report 9254601 (Version 1)
Quarter: 2013Q2

REPORT INFORMATION
  Report Type: Spontaneous
  Country: US (occurrence: US)
  Receive Date: 20130425
  Receipt Date: 20130425
  Transmission Date: 20140414
  Serious: Yes (Other)
  Sender: FDA-Public Use
  Company Number: US-PFIZER INC-2013125363

PATIENT
  Age: 76 Year
  Sex: Male
  Weight: 73.92 kg

DRUGS (11)
  1. XELJANZ [Suspect]
     Indication: SWELLING
     Dosage: UNK, 2X/DAY
     Dates: start: 2013
  2. XELJANZ [Suspect]
     Indication: PAIN
  3. XELJANZ [Suspect]
     Indication: ARTHRITIS
  4. METHOTREXATE SODIUM [Suspect]
     Indication: ARTHRITIS
     Dosage: 4 DF, WEEKLY ON FRIDAY
  5. METHOTREXATE SODIUM [Suspect]
     Dosage: UNK
  6. PREDNISOLONE [Suspect]
     Indication: ARTHRITIS
     Dosage: 5 MG, UNK
  7. PREDNISOLONE [Suspect]
     Dosage: UNK
  8. PREDNISOLONE [Suspect]
     Dosage: 5 MG, 1X/DAY
  9. PLAVIX [Concomitant]
     Dosage: 75 MG, 1X/DAY
  10. ASPIRIN [Concomitant]
     Dosage: 81 MG, 2X/DAY
  11. PRAVASTATIN [Concomitant]
     Dosage: 40 MG, 1X/DAY

REACTIONS (5)
  - Abasia [Unknown]
  - Pain in extremity [Unknown]
  - Arthralgia [Unknown]
  - Musculoskeletal pain [Unknown]
  - Drug ineffective [Unknown]
